FAERS Safety Report 9701938 (Version 1)
Quarter: 2013Q4

REPORT INFORMATION
  Report Type: Spontaneous
  Country: US (occurrence: US)
  Receive Date: 20131121
  Receipt Date: 20131121
  Transmission Date: 20140711
  Serious: Yes (Other)
  Sender: FDA-Public Use
  Company Number: US-PFIZER INC-2013330909

PATIENT
  Sex: Female

DRUGS (1)
  1. CELEBREX [Suspect]
     Dosage: UNK

REACTIONS (6)
  - Arthropathy [Unknown]
  - Foot fracture [Unknown]
  - Ankle fracture [Unknown]
  - Fall [Unknown]
  - Osteoarthritis [Unknown]
  - Pain [Unknown]
